FAERS Safety Report 24741392 (Version 1)
Quarter: 2024Q4

REPORT INFORMATION
  Report Type: Spontaneous
  Country: US (occurrence: US)
  Receive Date: 20241217
  Receipt Date: 20241217
  Transmission Date: 20250115
  Serious: No
  Sender: RECKITT BENCKISER
  Company Number: US-PROD-AS2-212756134-RB-081984-2024

PATIENT
  Age: 25 Year
  Sex: Male
  Weight: 65.91 kg

DRUGS (2)
  1. DELSYM [Suspect]
     Active Substance: DEXTROMETHORPHAN
     Indication: Product used for unknown indication
     Dosage: 10.000ML
     Route: 048
     Dates: start: 20231215
  2. ALBUTEROL SULFATE [Concomitant]
     Active Substance: ALBUTEROL SULFATE
     Indication: Asthma
     Dosage: UNK
     Route: 065

REACTIONS (3)
  - Anxiety [Recovered/Resolved]
  - Poisoning [Recovered/Resolved]
  - Incorrect product administration duration [Recovered/Resolved]

NARRATIVE: CASE EVENT DATE: 20231215
